FAERS Safety Report 24708097 (Version 1)
Quarter: 2024Q4

REPORT INFORMATION
  Report Type: Report from Study
  Country: CO (occurrence: CO)
  Receive Date: 20241206
  Receipt Date: 20241206
  Transmission Date: 20250114
  Serious: Yes (Hospitalization)
  Sender: ABBVIE
  Company Number: CO-JNJFOC-20241172733

PATIENT
  Age: 38 Year
  Sex: Male
  Weight: 63 kg

DRUGS (1)
  1. IMBRUVICA [Suspect]
     Active Substance: IBRUTINIB
     Indication: Graft versus host disease
     Route: 048
     Dates: start: 20241008, end: 20241008

REACTIONS (1)
  - Eye inflammation [Unknown]

NARRATIVE: CASE EVENT DATE: 20241120
